FAERS Safety Report 10155756 (Version 1)
Quarter: 2014Q2

REPORT INFORMATION
  Report Type: Spontaneous
  Country: US (occurrence: US)
  Receive Date: 20140506
  Receipt Date: 20140506
  Transmission Date: 20141212
  Serious: No
  Sender: FDA-Public Use
  Company Number: US-BAYER-2014-060713

PATIENT
  Sex: Female

DRUGS (3)
  1. ALEVE CAPLET [Suspect]
  2. BAYER ADVANCED ASPIRIN REGULAR STRENGTH [Suspect]
  3. ADVIL [Concomitant]

REACTIONS (3)
  - Drug hypersensitivity [None]
  - Gastric disorder [None]
  - Gastrointestinal disorder [None]
